FAERS Safety Report 6634141-5 (Version None)
Quarter: 2010Q1

REPORT INFORMATION
  Report Type: 
  Country: None (occurrence: None)
  Receive Date: 20100315
  Receipt Date: 20100302
  Transmission Date: 20100710
  Serious: Yes (Other)
  Sender: FDA-Public Use
  Company Number: GB-ELI_LILLY_AND_COMPANY-GB201003000466

PATIENT
  Sex: Male

DRUGS (1)
  1. PROZAC [Suspect]
     Dosage: 20 MG, DAILY (1/D)

REACTIONS (2)
  - BONE MARROW TRANSPLANT [None]
  - HAEMOLYTIC ANAEMIA [None]
